FAERS Safety Report 16332130 (Version 1)
Quarter: 2019Q2

REPORT INFORMATION
  Report Type: Spontaneous
  Country: US (occurrence: US)
  Receive Date: 20190519
  Receipt Date: 20190519
  Transmission Date: 20190711
  Serious: Yes (Disabling)
  Sender: FDA-Public Use
  Company Number: None

PATIENT
  Age: 35 Year
  Sex: Male
  Weight: 83.25 kg

DRUGS (5)
  1. ZOLOFT [Concomitant]
     Active Substance: SERTRALINE HYDROCHLORIDE
  2. VITAMIN D [Concomitant]
     Active Substance: VITAMIN D NOS
  3. GADAVIST [Suspect]
     Active Substance: GADOBUTROL
     Indication: SCAN WITH CONTRAST
     Dosage: ?          QUANTITY:9.5 ML;?
     Route: 042
     Dates: start: 20180514, end: 20180514
  4. WELLBUTRIN XL [Concomitant]
     Active Substance: BUPROPION HYDROCHLORIDE
  5. GADAVIST [Suspect]
     Active Substance: GADOBUTROL
     Indication: NUCLEAR MAGNETIC RESONANCE IMAGING
     Dosage: ?          QUANTITY:9.5 ML;?
     Route: 042
     Dates: start: 20180514, end: 20180514

REACTIONS (20)
  - Haemangioma of skin [None]
  - Memory impairment [None]
  - Feeling abnormal [None]
  - Muscle twitching [None]
  - Fatigue [None]
  - Breast necrosis [None]
  - Disturbance in attention [None]
  - Bone disorder [None]
  - Flank pain [None]
  - Contrast media toxicity [None]
  - Drug clearance decreased [None]
  - Arthralgia [None]
  - Arthritis [None]
  - Tinnitus [None]
  - Nausea [None]
  - Mental impairment [None]
  - Osteitis [None]
  - Vitreous floaters [None]
  - Thinking abnormal [None]
  - Migraine [None]
